FAERS Safety Report 5643878-6 (Version None)
Quarter: 2008Q1

REPORT INFORMATION
  Report Type: 
  Country: None (occurrence: None)
  Receive Date: 20080226
  Receipt Date: 20080212
  Transmission Date: 20080703
  Serious: Yes (Other)
  Sender: FDA-Public Use
  Company Number: 2008S1000042

PATIENT
  Sex: Female

DRUGS (5)
  1. OLUX [Suspect]
     Indication: SKIN DISORDER
     Dosage: 0.05 PCT; PRN; TOP, 0.05 PCT; X1; NAS
     Dates: start: 20080212, end: 20080212
  2. OLUX [Suspect]
     Indication: SKIN DISORDER
     Dosage: 0.05 PCT; PRN; TOP, 0.05 PCT; X1; NAS
     Dates: end: 20080212
  3. WELLBUTRIN [Concomitant]
  4. THYROID TAB [Concomitant]
  5. SINGULAIR [Concomitant]

REACTIONS (6)
  - ACCIDENTAL EXPOSURE [None]
  - DRUG DISPENSING ERROR [None]
  - ERYTHEMA [None]
  - FEELING ABNORMAL [None]
  - HEADACHE [None]
  - PARANASAL SINUS HYPERSECRETION [None]
